FAERS Safety Report 4621353-5 (Version None)
Quarter: 2005Q1

REPORT INFORMATION
  Report Type: 
  Country: None (occurrence: None)
  Receive Date: 20050328
  Receipt Date: 20050314
  Transmission Date: 20050727
  Serious: Yes (Hospitalization)
  Sender: FDA-Public Use
  Company Number: 2005AP000234

PATIENT
  Age: 59 Year
  Sex: Male

DRUGS (1)
  1. AMIODARONE HCL [Suspect]
     Indication: ATRIAL FIBRILLATION
     Dosage: INTRAVENOUS (NOS)
     Route: 042

REACTIONS (3)
  - HEART TRANSPLANT [None]
  - HEPATOTOXICITY [None]
  - HYPERTHYROIDISM [None]
